FAERS Safety Report 6746907-1 (Version None)
Quarter: 2010Q2

REPORT INFORMATION
  Report Type: 
  Country: None (occurrence: None)
  Receive Date: 20100528
  Receipt Date: 20100204
  Transmission Date: 20101027
  Serious: No
  Sender: FDA-Public Use
  Company Number: US-ASTRAZENECA-2010SE06240

PATIENT
  Age: 55 Year
  Sex: Male

DRUGS (6)
  1. PRILOSEC OTC [Suspect]
     Indication: DYSPEPSIA
     Dosage: 1 TABLET, 1 /DAY
     Route: 048
  2. PRILOSEC OTC [Suspect]
     Indication: GASTROOESOPHAGEAL REFLUX DISEASE
     Dosage: 1 TABLET, 1 /DAY
     Route: 048
  3. PRILOSEC OTC [Suspect]
  4. PRILOSEC OTC [Suspect]
  5. VITAMIN TAB [Concomitant]
     Dosage: UNKNOWN
  6. TYLENOL (CAPLET) [Concomitant]
     Indication: HEADACHE
     Dosage: UNKNOWN

REACTIONS (1)
  - DYSGEUSIA [None]
